FAERS Safety Report 17883797 (Version 2)
Quarter: 2020Q2

REPORT INFORMATION
  Report Type: Report from Study
  Country: US (occurrence: US)
  Receive Date: 20200611
  Receipt Date: 20200619
  Transmission Date: 20200714
  Serious: Yes (Death, Hospitalization, Other)
  Sender: FDA-Public Use
  Company Number: US-BRISTOL-MYERS SQUIBB COMPANY-BMS-2020-045960

PATIENT
  Age: 54 Year
  Sex: Male
  Weight: 65.2 kg

DRUGS (6)
  1. GRT-R902 [Suspect]
     Active Substance: INVESTIGATIONAL PRODUCT
     Indication: OESOPHAGEAL ADENOCARCINOMA
     Dosage: 100 MICROGRAM
     Route: 065
     Dates: start: 20200312
  2. NIVOLUMAB [Suspect]
     Active Substance: NIVOLUMAB
     Indication: OESOPHAGEAL ADENOCARCINOMA
     Dosage: 480 MILLIGRAM
     Route: 042
     Dates: start: 20200213
  3. MIACALCIN [Concomitant]
     Active Substance: CALCITONIN SALMON
     Indication: PRODUCT USED FOR UNKNOWN INDICATION
     Dosage: UNK
     Route: 065
     Dates: start: 20200604
  4. DEXTROSE. [Concomitant]
     Active Substance: DEXTROSE
     Indication: PRODUCT USED FOR UNKNOWN INDICATION
     Dosage: UNK
     Route: 065
     Dates: start: 20200604
  5. IPILIMUMAB [Suspect]
     Active Substance: IPILIMUMAB
     Indication: OESOPHAGEAL ADENOCARCINOMA
     Dosage: 30 MILLIGRAM
     Route: 058
     Dates: start: 20200213
  6. GRT-C901 [Suspect]
     Active Substance: INVESTIGATIONAL PRODUCT
     Indication: OESOPHAGEAL ADENOCARCINOMA
     Dosage: 1 E12
     Route: 065
     Dates: start: 20200213, end: 20200213

REACTIONS (2)
  - Respiratory failure [Fatal]
  - Hyperthyroidism [Unknown]

NARRATIVE: CASE EVENT DATE: 20200604
